FAERS Safety Report 24773431 (Version 1)
Quarter: 2024Q4

REPORT INFORMATION
  Report Type: Spontaneous
  Country: PT (occurrence: PT)
  Receive Date: 20241225
  Receipt Date: 20241225
  Transmission Date: 20250115
  Serious: Yes (Death, Hospitalization, Other)
  Sender: ASTELLAS
  Company Number: PT-ASTELLAS-2024-AER-026552

PATIENT
  Age: 29 Year
  Sex: Male

DRUGS (5)
  1. TACROLIMUS [Suspect]
     Active Substance: TACROLIMUS
     Indication: Prophylaxis against graft versus host disease
     Dosage: D-2
     Route: 065
     Dates: start: 2022
  2. THYMOCYTE IMMUNE GLOBULIN NOS [Concomitant]
     Active Substance: THYMOCYTE IMMUNE GLOBULIN NOS
     Indication: Prophylaxis against graft versus host disease
     Dosage: DAY (D)-3 TO D-1
     Route: 065
     Dates: start: 2022
  3. MYCOPHENOLATE MOFETIL [Concomitant]
     Active Substance: MYCOPHENOLATE MOFETIL
     Indication: Prophylaxis against graft versus host disease
     Dosage: 12/12 H. D-0 TO D+56
     Route: 065
     Dates: start: 2022
  4. URSODIOL [Concomitant]
     Active Substance: URSODIOL
     Indication: Prophylaxis
     Dosage: 8/8 H DURING THE ENTIRE HOSPITAL STAY
     Route: 065
     Dates: start: 2022
  5. ACETYLCYSTEINE [Concomitant]
     Active Substance: ACETYLCYSTEINE
     Indication: Prophylaxis
     Dosage: 12/12 H DURING THE ENTIRE HOSPITAL STAY
     Route: 065
     Dates: start: 2022

REACTIONS (3)
  - Septic shock [Fatal]
  - Hepatitis cholestatic [Fatal]
  - Off label use [Unknown]

NARRATIVE: CASE EVENT DATE: 20220101
